FAERS Safety Report 20004247 (Version 1)
Quarter: 2021Q4

REPORT INFORMATION
  Report Type: Spontaneous
  Country: US (occurrence: US)
  Receive Date: 20211027
  Receipt Date: 20211027
  Transmission Date: 20220303
  Serious: No
  Sender: FDA-Public Use
  Company Number: US-PERRIGO-21US000854

PATIENT
  Age: 65 Year
  Sex: Male
  Weight: 88.44 kg

DRUGS (1)
  1. NICOTINE POLACRILEX [Suspect]
     Active Substance: NICOTINE
     Indication: Off label use
     Dosage: 2 MG, PRN
     Route: 002
     Dates: end: 20210108

REACTIONS (2)
  - Product after taste [Recovered/Resolved]
  - Off label use [Recovered/Resolved]

NARRATIVE: CASE EVENT DATE: 20201101
